FAERS Safety Report 6040567-3 (Version None)
Quarter: 2009Q1

REPORT INFORMATION
  Report Type: 
  Country: None (occurrence: None)
  Receive Date: 20090116
  Receipt Date: 20080407
  Transmission Date: 20090719
  Serious: No
  Sender: FDA-Public Use
  Company Number: US-BRISTOL-MYERS SQUIBB COMPANY-14141436

PATIENT
  Age: 40 Year
  Sex: Female

DRUGS (5)
  1. ABILIFY [Suspect]
     Indication: DEPRESSION
     Dosage: 1 DOSAGE FORM = 30-40MG.
  2. ABILIFY [Suspect]
     Indication: ANXIETY
     Dosage: 1 DOSAGE FORM = 30-40MG.
  3. ABILIFY [Suspect]
     Indication: POST-TRAUMATIC STRESS DISORDER
     Dosage: 1 DOSAGE FORM = 30-40MG.
  4. DEPAKOTE [Concomitant]
  5. CLONAZEPAM [Concomitant]

REACTIONS (1)
  - TARDIVE DYSKINESIA [None]
